FAERS Safety Report 10784944 (Version 1)
Quarter: 2015Q1

REPORT INFORMATION
  Report Type: Spontaneous
  Country: US (occurrence: US)
  Receive Date: 20150211
  Receipt Date: 20150211
  Transmission Date: 20150721
  Serious: No
  Sender: FDA-Public Use
  Company Number: US-GLAXOSMITHKLINE-A1060019A

PATIENT

DRUGS (1)
  1. LAMICTAL [Suspect]
     Active Substance: LAMOTRIGINE
     Indication: BIPOLAR I DISORDER
     Dosage: 25 MG AT BEDTIME FOR 14 DAYS THEN INCREASED TO 50 MG AT BEDTIME FOR 14 DAYS
     Route: 048

REACTIONS (5)
  - Ear pain [Unknown]
  - Rash [Recovered/Resolved]
  - Local swelling [Unknown]
  - Rash erythematous [Recovered/Resolved]
  - Pruritus [Unknown]

NARRATIVE: CASE EVENT DATE: 20140104
